FAERS Safety Report 21156470 (Version 2)
Quarter: 2023Q1

REPORT INFORMATION
  Report Type: Spontaneous
  Country: US (occurrence: US)
  Receive Date: 20220801
  Receipt Date: 20230116
  Transmission Date: 20230418
  Serious: No
  Sender: FDA-Public Use
  Company Number: US-PADAGIS-2022PAD00225

PATIENT

DRUGS (1)
  1. NYSTATIN [Suspect]
     Active Substance: NYSTATIN
     Indication: Fungal infection
     Dosage: UNK
     Route: 065
     Dates: start: 202206

REACTIONS (2)
  - Skin exfoliation [Recovering/Resolving]
  - Burning sensation [Recovering/Resolving]
